FAERS Safety Report 14075112 (Version 2)
Quarter: 2017Q4

REPORT INFORMATION
  Report Type: Report from Study
  Country: US (occurrence: US)
  Receive Date: 20171010
  Receipt Date: 20171212
  Transmission Date: 20180321
  Serious: Yes (Hospitalization, Other)
  Sender: FDA-Public Use
  Company Number: US-ACTELION-A-NJ2017-160635

PATIENT
  Age: 60 Year
  Sex: Female
  Weight: 39.91 kg

DRUGS (3)
  1. NIFEDIPINE. [Concomitant]
     Active Substance: NIFEDIPINE
  2. REVATIO [Concomitant]
     Active Substance: SILDENAFIL CITRATE
     Dosage: 20 MG, TID
     Route: 048
  3. TRACLEER [Suspect]
     Active Substance: BOSENTAN
     Indication: PULMONARY HYPERTENSION
     Dosage: 125 MG, BID
     Route: 048
     Dates: start: 20170328, end: 20171203

REACTIONS (9)
  - Pneumonia [Unknown]
  - Dyspnoea [Unknown]
  - Hepatotoxicity [Unknown]
  - Malaise [Recovered/Resolved]
  - Cough [Unknown]
  - Dizziness [Unknown]
  - Fatigue [Recovered/Resolved]
  - Dehydration [Unknown]
  - Liver function test increased [Recovered/Resolved]
